FAERS Safety Report 19245662 (Version 4)
Quarter: 2021Q2

REPORT INFORMATION
  Report Type: Spontaneous
  Country: CA (occurrence: CA)
  Receive Date: 20210512
  Receipt Date: 20210625
  Transmission Date: 20210717
  Serious: Yes (Other)
  Sender: FDA-Public Use
  Company Number: CA-CELLTRION INC.-2020CA035075

PATIENT

DRUGS (8)
  1. INFLECTRA [Suspect]
     Active Substance: INFLIXIMAB-DYYB
     Dosage: 5 MG/KG (400 MG), 0, 2, 6 THEN EVERY 8 WEEKS
     Route: 042
     Dates: start: 20201117
  2. INFLECTRA [Suspect]
     Active Substance: INFLIXIMAB-DYYB
     Dosage: 5 MG/KG (400 MG), 0, 2, 6 THEN EVERY 8 WEEKS
     Route: 042
     Dates: start: 20210514
  3. IMURAN [Concomitant]
     Active Substance: AZATHIOPRINE
     Dosage: 1 DF
  4. INFLECTRA [Suspect]
     Active Substance: INFLIXIMAB-DYYB
     Dosage: 5 MG/KG (400 MG), 0, 2, 6 THEN EVERY 8 WEEKS
     Route: 042
     Dates: start: 20210611
  5. INFLECTRA [Suspect]
     Active Substance: INFLIXIMAB-DYYB
     Indication: COLITIS ULCERATIVE
     Dosage: 5 MG/KG (400 MG), 0, 2, 6 THEN EVERY 8 WEEKS
     Route: 042
     Dates: start: 20200813
  6. INFLECTRA [Suspect]
     Active Substance: INFLIXIMAB-DYYB
     Dosage: 5 MG/KG (400 MG), 0, 2, 6 THEN EVERY 8 WEEKS
     Route: 042
     Dates: start: 20210501
  7. INFLECTRA [Suspect]
     Active Substance: INFLIXIMAB-DYYB
     Dosage: 5 MG/KG (400 MG), 0, 2, 6 THEN EVERY 8 WEEKS
     Route: 042
     Dates: start: 20200827
  8. IMURAN [Concomitant]
     Active Substance: AZATHIOPRINE
     Dosage: UNK
     Dates: start: 20200711

REACTIONS (4)
  - Weight increased [Unknown]
  - Pruritus [Recovered/Resolved]
  - Condition aggravated [Unknown]
  - Burning sensation [Unknown]

NARRATIVE: CASE EVENT DATE: 20210501
